FAERS Safety Report 9764291 (Version 1)
Quarter: 2013Q4

REPORT INFORMATION
  Report Type: Spontaneous
  Country: JP (occurrence: JP)
  Receive Date: 20131217
  Receipt Date: 20131217
  Transmission Date: 20140711
  Serious: Yes (Disabling)
  Sender: FDA-Public Use
  Company Number: JP-009507513-1312JPN005942

PATIENT
  Age: 25 Year
  Sex: Female

DRUGS (1)
  1. BETAMETHASONE SODIUM PHOSPHATE [Suspect]
     Dosage: DURATION 4 MONTHS
     Route: 048
     Dates: start: 200705, end: 200708

REACTIONS (1)
  - Glaucoma [Unknown]
